FAERS Safety Report 4333828-7 (Version None)
Quarter: 2004Q2

REPORT INFORMATION
  Report Type: 
  Country: None (occurrence: None)
  Receive Date: 20040402
  Receipt Date: 20040322
  Transmission Date: 20050107
  Serious: Yes (Death)
  Sender: FDA-Public Use
  Company Number: 2004AP01317

PATIENT
  Age: 65 Year
  Sex: Male

DRUGS (4)
  1. IRESSA [Suspect]
     Indication: ADENOCARCINOMA
     Dosage: 250 MG DAILY PO
     Route: 048
     Dates: start: 20030907, end: 20030916
  2. IRESSA [Suspect]
     Indication: NON-SMALL CELL LUNG CANCER
     Dosage: 250 MG DAILY PO
     Route: 048
     Dates: start: 20030907, end: 20030916
  3. CARBOPLATIN [Concomitant]
  4. IRINOTECAN [Concomitant]

REACTIONS (4)
  - CONDITION AGGRAVATED [None]
  - GASTRIC ULCER [None]
  - HAEMATEMESIS [None]
  - LUNG ADENOCARCINOMA [None]
